FAERS Safety Report 9686393 (Version 3)
Quarter: 2014Q1

REPORT INFORMATION
  Report Type: Spontaneous
  Country: US (occurrence: US)
  Receive Date: 20131113
  Receipt Date: 20140102
  Transmission Date: 20141002
  Serious: Yes (Hospitalization)
  Sender: FDA-Public Use
  Company Number: US-ACTELION-A-NJ2013-90820

PATIENT
  Age: 9 Month
  Sex: Female

DRUGS (2)
  1. TRACLEER [Suspect]
     Indication: PULMONARY ARTERIAL HYPERTENSION
     Dosage: 4 MG, Q12HRS
     Route: 048
  2. SYNAGIS [Concomitant]
     Dosage: UNK

REACTIONS (2)
  - Gastrooesophageal reflux disease [Recovering/Resolving]
  - Patent ductus arteriosus repair [Recovering/Resolving]
